FAERS Safety Report 23099787 (Version 1)
Quarter: 2023Q4

REPORT INFORMATION
  Report Type: Spontaneous
  Country: US (occurrence: None)
  Receive Date: 20231020
  Receipt Date: 20231020
  Transmission Date: 20240110
  Serious: Yes (Hospitalization)
  Sender: FDA-Public Use
  Company Number: None

PATIENT
  Age: 64 Year
  Sex: Male
  Weight: 89 kg

DRUGS (1)
  1. CARFILZOMIB [Suspect]
     Active Substance: CARFILZOMIB
     Dosage: FREQUENCY : ONCE;?
     Route: 042
     Dates: start: 20220524, end: 20220707

REACTIONS (6)
  - Pyrexia [None]
  - Liver function test increased [None]
  - Lymphadenopathy [None]
  - Drug reaction with eosinophilia and systemic symptoms [None]
  - Rash morbilliform [None]
  - Therapy interrupted [None]

NARRATIVE: CASE EVENT DATE: 20220615
